FAERS Safety Report 4600866-6 (Version None)
Quarter: 2005Q2

REPORT INFORMATION
  Report Type: 
  Country: None (occurrence: None)
  Receive Date: 20050204
  Receipt Date: 20050104
  Transmission Date: 20051028
  Serious: Yes (Other)
  Sender: FDA-Public Use
  Company Number: USA-2002-000626

PATIENT
  Age: 33 Year
  Sex: Female
  Weight: 72.6 kg

DRUGS (2)
  1. MIRENA [Suspect]
     Indication: CONTRACEPTION
     Dosage: 20 MICROG, CONT, INTRA-UTERINE
     Route: 015
     Dates: start: 20011106
  2. ORAL CONTRACEPTIVE NOS (ORAL CONTRACEPTIVE NOS) [Concomitant]

REACTIONS (8)
  - COMPLICATION OF DEVICE REMOVAL [None]
  - DEVICE FAILURE [None]
  - IUCD COMPLICATION [None]
  - NORMAL NEWBORN [None]
  - PELVIC PERITONEAL ADHESIONS [None]
  - POST PROCEDURAL PAIN [None]
  - PREGNANCY WITH CONTRACEPTIVE DEVICE [None]
  - UTERINE POLYP [None]
